FAERS Safety Report 5546128-4 (Version None)
Quarter: 2007Q4

REPORT INFORMATION
  Report Type: 
  Country: None (occurrence: None)
  Receive Date: 20071211
  Receipt Date: 20071113
  Transmission Date: 20080405
  Serious: No
  Sender: FDA-Public Use
  Company Number: US-BRISTOL-MYERS SQUIBB COMPANY-13980883

PATIENT
  Age: 40 Year
  Sex: Male
  Weight: 76 kg

DRUGS (5)
  1. EMSAM [Suspect]
     Indication: GENERALISED ANXIETY DISORDER
     Route: 062
     Dates: start: 20071101
  2. EMSAM [Suspect]
     Indication: DEPRESSION
     Route: 062
     Dates: start: 20071101
  3. LORAZEPAM [Concomitant]
  4. LUNESTA [Concomitant]
  5. CRESTOR [Concomitant]

REACTIONS (3)
  - DRY MOUTH [None]
  - INSOMNIA [None]
  - PALPITATIONS [None]
